FAERS Safety Report 21967616 (Version 3)
Quarter: 2023Q1

REPORT INFORMATION
  Report Type: Report from Study
  Country: IT (occurrence: IT)
  Receive Date: 20230208
  Receipt Date: 20230216
  Transmission Date: 20230418
  Serious: Yes (Other)
  Sender: FDA-Public Use
  Company Number: None

PATIENT
  Age: 76 Year
  Sex: Female
  Weight: 66 kg

DRUGS (2)
  1. PALBOCICLIB [Suspect]
     Active Substance: PALBOCICLIB
     Indication: Breast cancer metastatic
     Dosage: 100 MG/DAILY FOR 21 DAYS EVERY 28 DAYS
     Route: 048
     Dates: start: 20191111, end: 20221221
  2. FULVESTRANT [Concomitant]
     Active Substance: FULVESTRANT
     Indication: Breast cancer metastatic
     Dosage: EVERY 28 DAYS
     Route: 030

REACTIONS (2)
  - Respiratory failure [Recovered/Resolved with Sequelae]
  - Interstitial lung disease [Recovered/Resolved with Sequelae]
